FAERS Safety Report 24230690 (Version 1)
Quarter: 2024Q3

REPORT INFORMATION
  Report Type: Spontaneous
  Country: ES (occurrence: ES)
  Receive Date: 20240821
  Receipt Date: 20240821
  Transmission Date: 20241016
  Serious: Yes (Other)
  Sender: NOVO NORDISK
  Company Number: ES-NOVOPROD-1258221

PATIENT
  Sex: Female
  Weight: 81 kg

DRUGS (4)
  1. TRESIBA [Concomitant]
     Active Substance: INSULIN DEGLUDEC
     Dosage: DECREASED HER SLOW INSULIN BY 2 IU
  2. TRESIBA [Concomitant]
     Active Substance: INSULIN DEGLUDEC
     Indication: Type 1 diabetes mellitus
     Dosage: 34 IU
  3. WEGOVY [Suspect]
     Active Substance: SEMAGLUTIDE
     Indication: Type 1 diabetes mellitus
     Dosage: 0.25 MG
     Dates: start: 20240709
  4. WEGOVY [Suspect]
     Active Substance: SEMAGLUTIDE
     Indication: Type 1 diabetes mellitus
     Dosage: 0.5 MG
     Dates: start: 2024, end: 20240728

REACTIONS (11)
  - Ketoacidosis [Recovered/Resolved]
  - Lack of satiety [Recovered/Resolved]
  - Blood electrolytes decreased [Recovered/Resolved]
  - White blood cell count increased [Recovered/Resolved]
  - Hypoglycaemia [Recovered/Resolved]
  - Abdominal pain upper [Recovered/Resolved]
  - Fatigue [Recovered/Resolved]
  - Eructation [Recovered/Resolved]
  - Constipation [Unknown]
  - Vomiting [Recovered/Resolved]
  - Blood glucose increased [Recovered/Resolved]

NARRATIVE: CASE EVENT DATE: 20240709
